FAERS Safety Report 10576553 (Version 3)
Quarter: 2015Q2

REPORT INFORMATION
  Report Type: Spontaneous
  Country: JP (occurrence: JP)
  Receive Date: 20141111
  Receipt Date: 20150403
  Transmission Date: 20150821
  Serious: Yes (Hospitalization)
  Sender: FDA-Public Use
  Company Number: JP-TEVA-520431ISR

PATIENT
  Age: 30 Year
  Sex: Male
  Weight: 68 kg

DRUGS (9)
  1. (TS) ADEFURONIC TABLET 25MG, TAB, 25MG [Suspect]
     Active Substance: DICLOFENAC SODIUM
     Indication: PERICORONITIS
     Dosage: 100 MILLIGRAM DAILY;
     Route: 048
     Dates: start: 20110817, end: 20110822
  2. FLOMOX [Concomitant]
     Active Substance: CEFCAPENE PIVOXIL HYDROCHLORIDE HYDRATE
     Indication: ANTIINFLAMMATORY THERAPY
     Dosage: 300 MILLIGRAM DAILY;
     Route: 048
     Dates: start: 20110817, end: 20110822
  3. (TS) ADEFURONIC TABLET 25MG, TAB, 25MG [Suspect]
     Active Substance: DICLOFENAC SODIUM
     Indication: PAIN
  4. VOLTAREN SUPPO [Concomitant]
     Indication: PERICORONITIS
     Dosage: 200 MILLIGRAM DAILY;
     Route: 054
     Dates: start: 20110822, end: 20110827
  5. VOLTAREN SUPPO [Concomitant]
     Indication: PAIN
  6. LOXONIN [Suspect]
     Active Substance: LOXOPROFEN SODIUM
     Indication: PERICORONITIS
     Dosage: 10 DOSAGE FORMS DAILY;
     Route: 048
     Dates: start: 20110822, end: 20110827
  7. LOXONIN [Suspect]
     Active Substance: LOXOPROFEN SODIUM
     Indication: PAIN
  8. CRAVIT [Concomitant]
     Active Substance: LEVOFLOXACIN
     Indication: ANTIINFLAMMATORY THERAPY
     Dosage: 250 MILLIGRAM DAILY;
     Route: 048
     Dates: start: 20110822, end: 20110827
  9. MUCOSTA [Concomitant]
     Active Substance: REBAMIPIDE
     Indication: PROPHYLAXIS
     Dosage: 300 MILLIGRAM DAILY;
     Route: 048
     Dates: start: 20110825, end: 20110827

REACTIONS (3)
  - Duodenal ulcer perforation [Recovered/Resolved]
  - Peritonitis [Recovered/Resolved]
  - Product substitution issue [Unknown]

NARRATIVE: CASE EVENT DATE: 20110827
